FAERS Safety Report 18051986 (Version 4)
Quarter: 2021Q1

REPORT INFORMATION
  Report Type: Spontaneous
  Country: US (occurrence: US)
  Receive Date: 20200721
  Receipt Date: 20210326
  Transmission Date: 20210419
  Serious: Yes (Other)
  Sender: FDA-Public Use
  Company Number: US-PFIZER INC-2020275995

PATIENT
  Age: 6 Year
  Sex: Male

DRUGS (1)
  1. BENEFIX [Suspect]
     Active Substance: COAGULATION FACTOR IX RECOMBINANT HUMAN\ISOPROPYL ALCOHOL
     Indication: FACTOR IX DEFICIENCY
     Dosage: 1337 IU, 2X/WEEK (1337 UNITS (+/?10%)
     Route: 042
     Dates: start: 202001

REACTIONS (4)
  - Tooth socket haemorrhage [Unknown]
  - Head injury [Unknown]
  - Loose tooth [Unknown]
  - Haemarthrosis [Unknown]
